FAERS Safety Report 8838922 (Version 1)
Quarter: 2012Q4

REPORT INFORMATION
  Report Type: Spontaneous
  Country: US (occurrence: None)
  Receive Date: 20121011
  Receipt Date: 20121011
  Transmission Date: 20130627
  Serious: Yes (Hospitalization)
  Sender: FDA-Public Use
  Company Number: None

PATIENT
  Age: 73 Year
  Sex: Male
  Weight: 102.06 kg

DRUGS (6)
  1. GEMCITABINE [Suspect]
     Dosage: IV every 2 weeks
     Route: 042
     Dates: start: 20120830
  2. GEMCITABINE [Suspect]
     Dosage: IV every 2 weeks
     Route: 042
     Dates: start: 20120913
  3. CISPLATIN [Suspect]
     Dosage: IV every 2 weeks
     Route: 042
     Dates: start: 20120830
  4. CISPLATIN [Suspect]
     Dosage: IV every 2 weeks
     Dates: start: 20120913
  5. NEULASTA [Suspect]
     Dosage: 24-48 hr post chemo
     Dates: start: 20120831
  6. NEULASTA [Suspect]
     Dosage: 24-48 hr post chemo
     Dates: start: 20120914

REACTIONS (3)
  - Renal failure acute [None]
  - Fluid overload [None]
  - Cardiac failure [None]
